FAERS Safety Report 24250988 (Version 1)
Quarter: 2024Q3

REPORT INFORMATION
  Report Type: Spontaneous
  Country: US (occurrence: None)
  Receive Date: 20240826
  Receipt Date: 20240826
  Transmission Date: 20241016
  Serious: Yes (Hospitalization)
  Sender: Public
  Company Number: None

PATIENT
  Age: 55 Year
  Sex: Male

DRUGS (1)
  1. SPRYCEL [Suspect]
     Active Substance: DASATINIB
     Indication: Chronic myeloid leukaemia
     Dosage: OTHER FREQUENCY : EVERY NIGHT;?
     Dates: start: 20231130, end: 20240803

REACTIONS (3)
  - Peripheral swelling [None]
  - Dyspnoea [None]
  - Pulmonary oedema [None]

NARRATIVE: CASE EVENT DATE: 20240201
